FAERS Safety Report 4476639-4 (Version None)
Quarter: 2004Q4

REPORT INFORMATION
  Report Type: 
  Country: None (occurrence: None)
  Receive Date: 20041013
  Receipt Date: 20040927
  Transmission Date: 20050328
  Serious: Yes (Hospitalization, Other)
  Sender: FDA-Public Use
  Company Number: USA040979497

PATIENT
  Sex: Female

DRUGS (2)
  1. EVISTA [Suspect]
  2. UNSPECIFIED CHOLESTEROL MEDICATION [Concomitant]

REACTIONS (1)
  - POSTOPERATIVE INFECTION [None]
